FAERS Safety Report 21011122 (Version 1)
Quarter: 2022Q2

REPORT INFORMATION
  Report Type: Spontaneous
  Country: JP (occurrence: JP)
  Receive Date: 20220627
  Receipt Date: 20220627
  Transmission Date: 20220721
  Serious: No
  Sender: FDA-Public Use
  Company Number: JP-MSD-M2022-24514

PATIENT
  Age: 7 Decade
  Sex: Male

DRUGS (1)
  1. MOLNUPIRAVIR [Suspect]
     Active Substance: MOLNUPIRAVIR
     Indication: COVID-19 treatment
     Dosage: AFTER TAKING ABOUT 5 TIMES, ONLY 4 CAPSULES LEFT
     Route: 048

REACTIONS (1)
  - Overdose [Unknown]
